FAERS Safety Report 6591405-1 (Version None)
Quarter: 2010Q1

REPORT INFORMATION
  Report Type: 
  Country: None (occurrence: None)
  Receive Date: 20100219
  Receipt Date: 20100209
  Transmission Date: 20100710
  Serious: Yes (Other)
  Sender: FDA-Public Use
  Company Number: CA-JNJCH-2010003369

PATIENT
  Sex: Male

DRUGS (1)
  1. ROLAIDS MULTI-SYMPTOM [Suspect]
     Indication: FLATULENCE
     Dosage: TEXT:4-6 TABLETS DAILY
     Route: 048

REACTIONS (4)
  - ABDOMINAL PAIN UPPER [None]
  - DIARRHOEA [None]
  - HERNIA [None]
  - MALAISE [None]
